FAERS Safety Report 26212260 (Version 1)
Quarter: 2025Q4

REPORT INFORMATION
  Report Type: Report from Study
  Country: EU (occurrence: EU)
  Receive Date: 20251230
  Receipt Date: 20251230
  Transmission Date: 20260117
  Serious: No
  Sender: TRAVERE THERAPEUTICS
  Company Number: EU-BEH-2025230415

PATIENT
  Sex: Male

DRUGS (2)
  1. SPARSENTAN [Suspect]
     Active Substance: SPARSENTAN
     Indication: IgA nephropathy
     Dosage: 400 MG
     Route: 065
  2. SPARSENTAN [Suspect]
     Active Substance: SPARSENTAN
     Dosage: 200 MG
     Route: 065

REACTIONS (1)
  - Therapy change [Unknown]
